FAERS Safety Report 11241576 (Version 2)
Quarter: 2015Q3

REPORT INFORMATION
  Report Type: Spontaneous
  Country: JP (occurrence: JP)
  Receive Date: 20150706
  Receipt Date: 20150714
  Transmission Date: 20151125
  Serious: Yes (Other)
  Sender: FDA-Public Use
  Company Number: JP-PFIZER INC-2015219727

PATIENT
  Sex: Male

DRUGS (3)
  1. KARY UNI [Concomitant]
     Active Substance: PIRENOXINE
     Indication: CATARACT
     Dosage: LEFT EYE
     Route: 047
  2. XALATAN [Suspect]
     Active Substance: LATANOPROST
     Indication: OPEN ANGLE GLAUCOMA
     Dosage: 1 GTT (BOTH EYES), DAILY
     Route: 047
     Dates: start: 20111222, end: 20150415
  3. BRONUCK [Concomitant]
     Active Substance: BROMFENAC SODIUM
     Indication: INFLAMMATION
     Dosage: RIGHT EYE
     Route: 047

REACTIONS (2)
  - Hepatic function abnormal [Unknown]
  - Visual impairment [Unknown]
